FAERS Safety Report 16529017 (Version 4)
Quarter: 2019Q3

REPORT INFORMATION
  Report Type: Report from Study
  Country: US (occurrence: US)
  Receive Date: 20190703
  Receipt Date: 20190812
  Transmission Date: 20191004
  Serious: Yes (Hospitalization, Other)
  Sender: FDA-Public Use
  Company Number: US-TAKEDA-2019TUS041062

PATIENT
  Sex: Female

DRUGS (5)
  1. PONATINIB [Suspect]
     Active Substance: PONATINIB
     Indication: ACUTE LYMPHOCYTIC LEUKAEMIA
     Dosage: 15 MILLIGRAM, QD
     Route: 048
     Dates: start: 201809
  2. PONATINIB [Suspect]
     Active Substance: PONATINIB
     Dosage: 45 MILLIGRAM, QD
     Route: 048
  3. CASPOFUNGIN [Concomitant]
     Active Substance: CASPOFUNGIN
     Dosage: UNK
  4. POSACONAZOLE [Concomitant]
     Active Substance: POSACONAZOLE
     Dosage: UNK
  5. VENETOCLAX. [Concomitant]
     Active Substance: VENETOCLAX
     Dosage: UNK

REACTIONS (15)
  - Blood lactate dehydrogenase increased [Unknown]
  - Asthenia [Unknown]
  - Graft versus host disease in gastrointestinal tract [Unknown]
  - Clostridium difficile infection [Unknown]
  - Malnutrition [Unknown]
  - Pericardial effusion [Unknown]
  - Blood alkaline phosphatase decreased [Unknown]
  - White blood cell count decreased [Unknown]
  - Blood urea increased [Unknown]
  - Fatigue [Unknown]
  - Essential hypertension [Unknown]
  - Blood chloride increased [Unknown]
  - Thrombocytopenia [Unknown]
  - Ejection fraction decreased [Unknown]
  - Anaemia [Unknown]
